FAERS Safety Report 19277003 (Version 1)
Quarter: 2021Q2

REPORT INFORMATION
  Report Type: Spontaneous
  Country: PT (occurrence: PT)
  Receive Date: 20210519
  Receipt Date: 20210519
  Transmission Date: 20210717
  Serious: Yes (Other)
  Sender: FDA-Public Use
  Company Number: PT-VALIDUS PHARMACEUTICALS LLC-PT-2021VAL001197

PATIENT

DRUGS (29)
  1. ACEMETACIN [Suspect]
     Active Substance: ACEMETACIN
     Indication: COMPLEX REGIONAL PAIN SYNDROME
     Dosage: 90 MG, BID
     Route: 065
  2. PALEXIA [Suspect]
     Active Substance: TAPENTADOL HYDROCHLORIDE
     Indication: PRODUCT USED FOR UNKNOWN INDICATION
     Dosage: UNK
     Route: 048
  3. TRENTAL [Suspect]
     Active Substance: PENTOXIFYLLINE
     Indication: PRODUCT USED FOR UNKNOWN INDICATION
     Dosage: UNK
     Route: 065
  4. TRITICUM AC [Suspect]
     Active Substance: TRAZODONE HYDROCHLORIDE
     Indication: COMPLEX REGIONAL PAIN SYNDROME
     Dosage: 150 MG, QD
     Route: 065
  5. PALEXIA [Suspect]
     Active Substance: TAPENTADOL HYDROCHLORIDE
     Dosage: UNK
     Route: 048
  6. IBURON [Suspect]
     Active Substance: IBUPROFEN
     Indication: PRODUCT USED FOR UNKNOWN INDICATION
     Dosage: UNK
     Route: 065
  7. LYRICA [Suspect]
     Active Substance: PREGABALIN
     Indication: PRODUCT USED FOR UNKNOWN INDICATION
     Dosage: UNK
     Route: 065
  8. DULOXETINE HYDROCHLORIDE. [Suspect]
     Active Substance: DULOXETINE HYDROCHLORIDE
     Indication: PRODUCT USED FOR UNKNOWN INDICATION
     Dosage: UNK
     Route: 065
  9. PHENYTOIN. [Suspect]
     Active Substance: PHENYTOIN
     Indication: COMPLEX REGIONAL PAIN SYNDROME
     Dosage: 100 MG, BID
     Route: 065
  10. VENLAFAXINE HYDROCHLORIDE. [Suspect]
     Active Substance: VENLAFAXINE HYDROCHLORIDE
     Indication: COMPLEX REGIONAL PAIN SYNDROME
     Dosage: 150 MG, QD
     Route: 065
  11. THROMBOCID FORTE [Suspect]
     Active Substance: PENTOSAN POLYSULFATE SODIUM
     Indication: PRODUCT USED FOR UNKNOWN INDICATION
     Dosage: UNK
     Route: 065
  12. LYRICA [Suspect]
     Active Substance: PREGABALIN
     Dosage: 300 MG, BID
     Route: 065
  13. DULOXETIN TEVA [Suspect]
     Active Substance: DULOXETINE HYDROCHLORIDE
     Indication: PRODUCT USED FOR UNKNOWN INDICATION
     Dosage: UNK
     Route: 065
  14. NAPROSYNE [Suspect]
     Active Substance: NAPROXEN
     Indication: PRODUCT USED FOR UNKNOWN INDICATION
     Dosage: 500 MG, BID
     Route: 065
  15. EFEXOR [Suspect]
     Active Substance: VENLAFAXINE HYDROCHLORIDE
     Indication: COMPLEX REGIONAL PAIN SYNDROME
     Dosage: 150 MG, QD
     Route: 065
  16. ROSILAN [Suspect]
     Active Substance: DEFLAZACORT
     Indication: PRODUCT USED FOR UNKNOWN INDICATION
     Dosage: UNK
     Route: 065
  17. NORTRIPTYLINE [Suspect]
     Active Substance: NORTRIPTYLINE
     Indication: PRODUCT USED FOR UNKNOWN INDICATION
     Dosage: UNK
     Route: 065
  18. PARACETAMOL [Suspect]
     Active Substance: ACETAMINOPHEN
     Indication: PRODUCT USED FOR UNKNOWN INDICATION
     Dosage: UNK
     Route: 065
  19. CLONAZEPAM. [Suspect]
     Active Substance: CLONAZEPAM
     Indication: COMPLEX REGIONAL PAIN SYNDROME
     Dosage: 0.5 MG, QD
     Route: 065
  20. ADT [Suspect]
     Active Substance: AMITRIPTYLINE HYDROCHLORIDE
     Indication: PRODUCT USED FOR UNKNOWN INDICATION
     Dosage: UNK
     Route: 065
  21. TARGIN [Suspect]
     Active Substance: NALOXONE HYDROCHLORIDE\OXYCODONE HYDROCHLORIDE
     Indication: PRODUCT USED FOR UNKNOWN INDICATION
     Dosage: UNK
     Route: 065
  22. TRANSTEC [Suspect]
     Active Substance: BUPRENORPHINE
     Indication: PRODUCT USED FOR UNKNOWN INDICATION
     Dosage: 37.5 MCG/H/ TRANSDERMAL
     Route: 062
  23. UNISEDIL [Suspect]
     Active Substance: DIAZEPAM
     Indication: PRODUCT USED FOR UNKNOWN INDICATION
     Dosage: UNK
     Route: 065
  24. EXXIV [Suspect]
     Active Substance: ETORICOXIB
     Indication: PRODUCT USED FOR UNKNOWN INDICATION
     Dosage: UNK
     Route: 065
  25. FOSAVANCE [Suspect]
     Active Substance: ALENDRONATE SODIUM\CHOLECALCIFEROL
     Indication: PRODUCT USED FOR UNKNOWN INDICATION
     Dosage: UNK
     Route: 065
  26. METAMIZOLE SODIUM [Suspect]
     Active Substance: METAMIZOLE SODIUM
     Indication: COMPLEX REGIONAL PAIN SYNDROME
     Dosage: 575 MG, QD
     Route: 065
  27. EXXIV [Suspect]
     Active Substance: ETORICOXIB
     Dosage: UNK
     Route: 048
  28. CODEINE PHOSPHATE W/PARACETAMOL [Suspect]
     Active Substance: ACETAMINOPHEN\CODEINE PHOSPHATE
     Indication: PRODUCT USED FOR UNKNOWN INDICATION
     Dosage: 30/500 MG, TID
     Route: 065
  29. CYCLOBENZAPRINE. [Suspect]
     Active Substance: CYCLOBENZAPRINE
     Indication: COMPLEX REGIONAL PAIN SYNDROME
     Dosage: 10 MG, QD
     Route: 065

REACTIONS (19)
  - Back pain [Unknown]
  - Hypotonia [Unknown]
  - Diarrhoea [Unknown]
  - Peripheral coldness [Unknown]
  - Skin atrophy [Unknown]
  - Hyperaesthesia [Unknown]
  - Oedema [Unknown]
  - Major depression [Unknown]
  - Drug intolerance [Unknown]
  - Hyperhidrosis [Unknown]
  - Muscular weakness [Unknown]
  - Neck pain [Unknown]
  - Pain [Unknown]
  - Joint contracture [Unknown]
  - Pyrexia [Unknown]
  - Suicidal ideation [Unknown]
  - Allodynia [Unknown]
  - Hypokinesia [Unknown]
  - Nausea [Unknown]
